FAERS Safety Report 25415799 (Version 1)
Quarter: 2025Q2

REPORT INFORMATION
  Report Type: Spontaneous
  Country: ES (occurrence: ES)
  Receive Date: 20250610
  Receipt Date: 20250610
  Transmission Date: 20250717
  Serious: Yes (Other)
  Sender: TEVA
  Company Number: None

PATIENT
  Age: 78 Year
  Sex: Male

DRUGS (9)
  1. PIRFENIDONE [Suspect]
     Active Substance: PIRFENIDONE
     Indication: Interstitial lung disease
     Route: 048
     Dates: start: 20250213, end: 20250508
  2. IVABRADINE [Concomitant]
     Active Substance: IVABRADINE
     Indication: Product used for unknown indication
     Dosage: 56 TABLETS
     Route: 048
     Dates: start: 20190712
  3. ASPIRIN [Concomitant]
     Active Substance: ASPIRIN
     Indication: Product used for unknown indication
     Dosage: EFG GASTRO-RESISTANT TABLETS, 30 TABLETS (PVC-ALUMINUM)
     Route: 048
     Dates: start: 20161123
  4. PANTOPRAZOL CINFA [Concomitant]
     Indication: Product used for unknown indication
     Dosage: GASTRO-RESISTANT TABLETS EFG, 28 TABLETS (BLISTER)
     Route: 048
     Dates: start: 20180712
  5. TRINISPRAY [Concomitant]
     Indication: Product used for unknown indication
     Dosage: 0.4 MG / 0.05 ML, SUBLINGUAL SPRAY SOLUTION, 1 SPRAY CONTAINER WITH 200 DOSES
     Route: 060
     Dates: start: 20170310
  6. BISOPROLOL [Concomitant]
     Active Substance: BISOPROLOL
     Indication: Product used for unknown indication
     Dosage: 28 TABLETS
     Route: 048
     Dates: start: 20170227
  7. EZETIMIBE [Concomitant]
     Active Substance: EZETIMIBE
     Indication: Product used for unknown indication
     Dosage: EZETIMIBE STADA, 28 TABLETS (PVC/PE/PVDC/AL)
     Route: 048
     Dates: start: 20250124
  8. RAMIPRIL STADA [Concomitant]
     Indication: Product used for unknown indication
     Dosage: 28 TABLETS (PA/AL/PVC/AL)
     Route: 048
     Dates: start: 20120426
  9. ACETAMINOPHEN [Concomitant]
     Active Substance: ACETAMINOPHEN
     Indication: Product used for unknown indication
     Dosage: EFG TABLETS, 40 TABLETS
     Route: 048
     Dates: start: 20210308

REACTIONS (1)
  - Photosensitivity reaction [Unknown]

NARRATIVE: CASE EVENT DATE: 20250401
